FAERS Safety Report 6509437-8 (Version None)
Quarter: 2009Q4

REPORT INFORMATION
  Report Type: 
  Country: None (occurrence: None)
  Receive Date: 20091222
  Receipt Date: 20091211
  Transmission Date: 20100525
  Serious: Yes (Other)
  Sender: FDA-Public Use
  Company Number: US-JNJFOC-20091004197

PATIENT
  Sex: Female
  Weight: 69.9 kg

DRUGS (25)
  1. REMICADE [Suspect]
     Dosage: 1.5 INFUSIONS TOTAL
     Route: 042
     Dates: start: 20090901, end: 20091009
  2. REMICADE [Suspect]
     Indication: CROHN'S DISEASE
     Route: 042
     Dates: start: 20090901, end: 20091009
  3. FENTANYL CITRATE [Concomitant]
  4. HYDROCHLOROTHIAZIDE [Concomitant]
     Route: 048
  5. PENTASA [Concomitant]
     Route: 048
  6. NYSTATIN [Concomitant]
     Route: 048
  7. PREDNISONE [Concomitant]
     Route: 048
  8. TRAZODONE HCL [Concomitant]
     Route: 048
  9. ENALAPRIL [Concomitant]
     Route: 048
  10. PHENERGAN HCL [Concomitant]
     Indication: NAUSEA
     Route: 054
  11. PROPOXYPHENE HCL CAP [Concomitant]
     Indication: PAIN
     Route: 048
  12. INDERAL LA [Concomitant]
     Route: 048
  13. NORVASC [Concomitant]
     Route: 048
  14. ESGIC [Concomitant]
     Indication: HEADACHE
     Route: 048
  15. FOLIC ACID [Concomitant]
     Route: 048
  16. UROCIT-K [Concomitant]
     Route: 048
  17. CLONIDINE [Concomitant]
     Route: 062
  18. PROTONIX [Concomitant]
     Route: 048
  19. VITAMIN B-12 [Concomitant]
  20. BENADRYL [Concomitant]
     Indication: PREMEDICATION
     Route: 042
  21. SOLU-MEDROL [Concomitant]
     Indication: PREMEDICATION
     Route: 042
  22. APAP TAB [Concomitant]
     Indication: PREMEDICATION
     Route: 042
  23. FLAGYL [Concomitant]
     Route: 048
  24. MERCAPTOPURINE [Concomitant]
     Route: 048
  25. ACETAMINOPHEN [Concomitant]
     Indication: PREMEDICATION
     Route: 048

REACTIONS (9)
  - ANAPHYLACTIC REACTION [None]
  - CHEST PAIN [None]
  - ELECTROCARDIOGRAM ST SEGMENT DEPRESSION [None]
  - INFUSION RELATED REACTION [None]
  - NAUSEA [None]
  - PRURITUS [None]
  - RASH [None]
  - URTICARIA [None]
  - VOMITING [None]
